FAERS Safety Report 6585960-5 (Version None)
Quarter: 2010Q1

REPORT INFORMATION
  Report Type: 
  Country: None (occurrence: None)
  Receive Date: 20100217
  Receipt Date: 20100210
  Transmission Date: 20100710
  Serious: Yes (Hospitalization)
  Sender: FDA-Public Use
  Company Number: US-ABBOTT-10P-163-0625843-00

PATIENT
  Sex: Male
  Weight: 95.34 kg

DRUGS (10)
  1. NIASPAN [Suspect]
     Indication: BLOOD CHOLESTEROL INCREASED
     Dates: start: 20080701, end: 20091101
  2. SIMCOR [Suspect]
     Indication: DRUG USE FOR UNKNOWN INDICATION
  3. SIMCOR [Concomitant]
     Indication: BLOOD CHOLESTEROL INCREASED
     Dosage: 500/20 MG
     Dates: start: 20100206
  4. PRILOSEC [Concomitant]
     Indication: PROPHYLAXIS AGAINST GASTROINTESTINAL ULCER
  5. LISINOPRIL [Concomitant]
     Indication: HYPERTENSION
  6. BYETTA [Concomitant]
     Indication: DIABETES MELLITUS
     Route: 058
  7. METFORMIN [Concomitant]
     Indication: DIABETES MELLITUS
  8. GLIPIZIDE [Concomitant]
     Indication: DIABETES MELLITUS
  9. AVANDIA [Concomitant]
     Indication: DIABETES MELLITUS
  10. UNKNOWN WATER PILL [Concomitant]
     Indication: DRUG USE FOR UNKNOWN INDICATION

REACTIONS (6)
  - BLOOD GLUCOSE INCREASED [None]
  - ENTERITIS INFECTIOUS [None]
  - FLUSHING [None]
  - INCISION SITE ABSCESS [None]
  - INJECTION SITE INFECTION [None]
  - INTESTINAL POLYP [None]
